FAERS Safety Report 16877214 (Version 1)
Quarter: 2019Q4

REPORT INFORMATION
  Report Type: Spontaneous
  Country: TW (occurrence: TW)
  Receive Date: 20191002
  Receipt Date: 20191002
  Transmission Date: 20200122
  Serious: Yes (Other)
  Sender: FDA-Public Use
  Company Number: TW-PFIZER INC-2019420044

PATIENT
  Age: 51 Year
  Sex: Male

DRUGS (1)
  1. BENEFIX [Suspect]
     Active Substance: COAGULATION FACTOR IX RECOMBINANT HUMAN\ISOPROPYL ALCOHOL
     Indication: FACTOR IX DEFICIENCY
     Dosage: 4000 IU, AS NEEDED
     Route: 042
     Dates: start: 201810

REACTIONS (2)
  - Parathyroid disorder [Not Recovered/Not Resolved]
  - Blood phosphorus increased [Not Recovered/Not Resolved]
